FAERS Safety Report 9422194 (Version 1)
Quarter: 2013Q3

REPORT INFORMATION
  Report Type: Spontaneous
  Country: US (occurrence: None)
  Receive Date: 20130725
  Receipt Date: 20130725
  Transmission Date: 20140515
  Serious: Yes (Other)
  Sender: FDA-Public Use
  Company Number: None

PATIENT
  Age: 06 Year
  Sex: Female
  Weight: 73.48 kg

DRUGS (1)
  1. EFFEXOR [Suspect]
     Indication: DEPRESSION
     Route: 048
     Dates: start: 20050621, end: 20130724

REACTIONS (10)
  - Drug withdrawal syndrome [None]
  - Crying [None]
  - Disorientation [None]
  - Confusional state [None]
  - Suicidal ideation [None]
  - Paraesthesia [None]
  - Anxiety [None]
  - Anger [None]
  - Abnormal behaviour [None]
  - Drug dependence [None]
